FAERS Safety Report 6128250-7 (Version None)
Quarter: 2009Q1

REPORT INFORMATION
  Report Type: 
  Country: None (occurrence: None)
  Receive Date: 20090323
  Receipt Date: 20090310
  Transmission Date: 20090719
  Serious: Yes (Other)
  Sender: FDA-Public Use
  Company Number: US-PFIZER INC-2006026568

PATIENT
  Sex: Female
  Weight: 63 kg

DRUGS (13)
  1. PROVERA [Suspect]
     Indication: MENOPAUSE
     Dosage: 10 MG, UNK
     Route: 048
     Dates: start: 19940701, end: 19970101
  2. MEDROXYPROGESTERONE AND MEDROXYPROGESTERONE ACETATE [Suspect]
     Indication: MENOPAUSE
     Dosage: 5 MG, UNK
     Route: 048
     Dates: start: 19940101, end: 19980101
  3. PREMARIN [Suspect]
     Indication: HORMONE REPLACEMENT THERAPY
     Dosage: 0.625 MG, UNK
     Route: 065
     Dates: start: 19940701, end: 19980301
  4. PREMARIN [Suspect]
     Indication: MENOPAUSE
  5. PREMARIN [Suspect]
  6. ESTRACE [Suspect]
     Indication: HORMONE REPLACEMENT THERAPY
     Dosage: 1 MG, UNK
     Dates: start: 19980401, end: 19981201
  7. ESTRACE [Suspect]
     Indication: MENOPAUSE
  8. CLIMARA [Suspect]
     Indication: HORMONE REPLACEMENT THERAPY
     Dosage: 0.05 UNK, UNK
     Route: 065
     Dates: start: 19990101, end: 20000101
  9. CLIMARA [Suspect]
     Indication: MENOPAUSE
  10. VIVELLE [Suspect]
     Indication: HORMONE REPLACEMENT THERAPY
     Dosage: 0.05 MG, UNK
     Route: 065
     Dates: start: 20000601, end: 20020201
  11. VIVELLE [Suspect]
     Indication: MENOPAUSE
  12. PROMETRIUM [Suspect]
     Indication: HORMONE REPLACEMENT THERAPY
     Dosage: 100 MG, UNK
     Route: 065
     Dates: start: 19991101, end: 20010401
  13. PROMETRIUM [Suspect]
     Indication: MENOPAUSE

REACTIONS (1)
  - BREAST CANCER FEMALE [None]
